FAERS Safety Report 7413238-6 (Version None)
Quarter: 2011Q2

REPORT INFORMATION
  Report Type: 
  Country: None (occurrence: None)
  Receive Date: 20110405
  Receipt Date: 20110328
  Transmission Date: 20111010
  Serious: Yes (Hospitalization)
  Sender: FDA-Public Use
  Company Number: 110069

PATIENT
  Age: 79 Year
  Sex: Female

DRUGS (10)
  1. LIPITOR [Concomitant]
  2. FISH OIL [Concomitant]
  3. TRIAMTEREN/HYDROCHLOROTHIAZIDE [Concomitant]
  4. ENALAPRIL [Concomitant]
  5. AMLODIPINE [Concomitant]
  6. CENTRUM SILVER [Concomitant]
  7. SUPREP BOWEL PREP KIT [Suspect]
     Indication: COLONOSCOPY
     Dosage: 1 X 6OZ. BOTTLE/1X/PO
     Route: 048
     Dates: start: 20110310
  8. LAXATIVE ( UNK.TYPE) [Concomitant]
  9. ASPIRIN [Concomitant]
  10. CALCIUM [Concomitant]

REACTIONS (3)
  - HAEMOGLOBIN ABNORMAL [None]
  - COLITIS ISCHAEMIC [None]
  - HYPERTENSION [None]
